FAERS Safety Report 19743352 (Version 1)
Quarter: 2021Q3

REPORT INFORMATION
  Report Type: Spontaneous
  Country: US (occurrence: US)
  Receive Date: 20210825
  Receipt Date: 20210825
  Transmission Date: 20211014
  Serious: No
  Sender: FDA-Public Use
  Company Number: US-BIOGEN-2021BI01041181

PATIENT
  Sex: Female

DRUGS (1)
  1. TYSABRI [Suspect]
     Active Substance: NATALIZUMAB
     Indication: PRODUCT USED FOR UNKNOWN INDICATION
     Route: 065
     Dates: end: 20210527

REACTIONS (5)
  - Pyrexia [Unknown]
  - Multiple sclerosis relapse [Unknown]
  - Psoriasis [Unknown]
  - Arthralgia [Unknown]
  - Fibromyalgia [Unknown]
